FAERS Safety Report 12206849 (Version 1)
Quarter: 2016Q1

REPORT INFORMATION
  Report Type: Spontaneous
  Country: US (occurrence: US)
  Receive Date: 20160324
  Receipt Date: 20160324
  Transmission Date: 20160526
  Serious: No
  Sender: FDA-Public Use
  Company Number: US-TEVA-639420ACC

PATIENT
  Age: 17 Year
  Sex: Female
  Weight: 52.66 kg

DRUGS (1)
  1. PLAN B ONE-STEP [Suspect]
     Active Substance: LEVONORGESTREL
     Indication: POST COITAL CONTRACEPTION
     Dates: start: 20160217, end: 20160217

REACTIONS (5)
  - Premenstrual cramps [Not Recovered/Not Resolved]
  - Hypomenorrhoea [Recovered/Resolved]
  - Menstruation irregular [Not Recovered/Not Resolved]
  - Nausea [Not Recovered/Not Resolved]
  - Abdominal distension [Not Recovered/Not Resolved]

NARRATIVE: CASE EVENT DATE: 20160217
